FAERS Safety Report 10063328 (Version 1)
Quarter: 2014Q2

REPORT INFORMATION
  Report Type: Spontaneous
  Country: US (occurrence: US)
  Receive Date: 20140407
  Receipt Date: 20140407
  Transmission Date: 20141212
  Serious: No
  Sender: FDA-Public Use
  Company Number: US-TEVA-473723USA

PATIENT
  Age: 24 Year
  Sex: Female
  Weight: 54.48 kg

DRUGS (1)
  1. PARAGARD 380A [Suspect]
     Indication: CONTRACEPTION
     Route: 015
     Dates: start: 20140220, end: 20140403

REACTIONS (3)
  - Dyspareunia [Unknown]
  - Dysmenorrhoea [Unknown]
  - Fungal infection [Unknown]
